FAERS Safety Report 11250670 (Version 1)
Quarter: 2015Q3

REPORT INFORMATION
  Report Type: Spontaneous
  Country: US (occurrence: US)
  Receive Date: 20150708
  Receipt Date: 20150708
  Transmission Date: 20151125
  Serious: Yes (Other)
  Sender: FDA-Public Use
  Company Number: US-ELI_LILLY_AND_COMPANY-US201103003656

PATIENT
  Age: 76 Year
  Sex: Female

DRUGS (2)
  1. GEMZAR [Suspect]
     Active Substance: GEMCITABINE HYDROCHLORIDE
     Indication: PANCREATIC CARCINOMA
     Dosage: 800 MG/M2, UNK
     Dates: start: 20110120
  2. GEMZAR [Suspect]
     Active Substance: GEMCITABINE HYDROCHLORIDE
     Dosage: 600 MG/M2, UNK

REACTIONS (3)
  - Platelet count decreased [Recovering/Resolving]
  - Malignant neoplasm progression [Not Recovered/Not Resolved]
  - Neutrophil count decreased [Recovering/Resolving]
